FAERS Safety Report 7798336-X (Version None)
Quarter: 2011Q4

REPORT INFORMATION
  Report Type: 
  Country: None (occurrence: None)
  Receive Date: 20111005
  Receipt Date: 20110928
  Transmission Date: 20120403
  Serious: Yes (Other)
  Sender: FDA-Public Use
  Company Number: US-ELI_LILLY_AND_COMPANY-US201109008064

PATIENT
  Sex: Female
  Weight: 74.376 kg

DRUGS (16)
  1. VITAMIN B-12 [Concomitant]
     Dosage: 1000 MG, QD
     Route: 050
  2. BYSTOLIC [Concomitant]
     Dosage: 20 MG, QD
     Route: 048
  3. HYDRALAZINE HCL [Concomitant]
     Indication: HYPERTENSION
     Dosage: 25 MG, BID
     Route: 048
  4. ASPIRIN [Concomitant]
     Dosage: 81 MG, QD
     Route: 048
  5. BYETTA [Suspect]
     Indication: TYPE 2 DIABETES MELLITUS
     Dosage: 5 UG, BID
     Route: 058
  6. HYZAAR [Concomitant]
     Dosage: UNK, QD
     Route: 048
  7. FUROSEMIDE [Concomitant]
     Dosage: 20 MG, QD
     Route: 048
  8. VYTORIN [Concomitant]
     Dosage: UNK, QD
     Dates: start: 20110801
  9. STOOL SOFTENER [Concomitant]
     Dosage: UNK
     Route: 048
  10. CALCITRIOL [Concomitant]
     Dosage: 50 MG, QD
     Route: 048
  11. ACTOS [Concomitant]
     Indication: TYPE 2 DIABETES MELLITUS
     Dosage: 15 MG, QD
     Route: 048
  12. GLIMEPIRIDE [Concomitant]
     Indication: TYPE 2 DIABETES MELLITUS
     Dosage: 0.25 MG, QD
     Route: 048
  13. VESICARE [Concomitant]
     Dosage: 5 MG, QD
     Route: 048
  14. BYETTA [Suspect]
     Dosage: 10 UG, BID
     Route: 058
     Dates: end: 20110912
  15. VYTORIN [Concomitant]
     Dosage: UNK, QD
     Route: 048
  16. VITAMIN D [Concomitant]
     Dosage: 50000 MG, MONTHLY (1/M)
     Route: 048

REACTIONS (5)
  - BLOOD PHOSPHORUS INCREASED [None]
  - BLOOD PRESSURE INCREASED [None]
  - WEIGHT DECREASED [None]
  - RENAL FAILURE [None]
  - GLYCOSYLATED HAEMOGLOBIN DECREASED [None]
